FAERS Safety Report 9275705 (Version 4)
Quarter: 2013Q4

REPORT INFORMATION
  Report Type: Spontaneous
  Country: US (occurrence: US)
  Receive Date: 20130507
  Receipt Date: 20131128
  Transmission Date: 20140711
  Serious: Yes (Hospitalization, Congenital Anomaly, Other)
  Sender: FDA-Public Use
  Company Number: US-JNJFOC-20130501968

PATIENT
  Sex: Male

DRUGS (14)
  1. TOPAMAX [Suspect]
     Indication: FOETAL EXPOSURE DURING PREGNANCY
     Route: 064
  2. METHADONE [Suspect]
     Indication: FOETAL EXPOSURE DURING PREGNANCY
     Route: 064
  3. KEPPRA [Suspect]
     Indication: FOETAL EXPOSURE DURING PREGNANCY
     Route: 064
  4. MEPERIDINE [Suspect]
     Indication: FOETAL EXPOSURE DURING PREGNANCY
     Route: 064
  5. COLACE [Suspect]
     Indication: FOETAL EXPOSURE DURING PREGNANCY
     Route: 064
  6. ZANTAC [Suspect]
     Indication: FOETAL EXPOSURE DURING PREGNANCY
     Route: 064
  7. DOXYCYCLINE [Suspect]
     Indication: FOETAL EXPOSURE DURING PREGNANCY
     Route: 064
  8. CELEXA [Suspect]
     Indication: FOETAL EXPOSURE DURING PREGNANCY
     Route: 064
  9. WELLBUTRIN [Suspect]
     Indication: FOETAL EXPOSURE DURING PREGNANCY
     Route: 064
  10. ADVAIR INHALER [Suspect]
     Indication: FOETAL EXPOSURE DURING PREGNANCY
     Route: 064
  11. ALBUTEROL [Suspect]
     Indication: FOETAL EXPOSURE DURING PREGNANCY
     Route: 064
  12. HYDROXYZINE [Suspect]
     Indication: FOETAL EXPOSURE DURING PREGNANCY
     Route: 064
  13. ENDOCET [Suspect]
     Indication: FOETAL EXPOSURE DURING PREGNANCY
     Route: 064
  14. PRENATAL VITAMIN [Concomitant]
     Route: 064

REACTIONS (11)
  - Pulmonary valve stenosis [Unknown]
  - Velopharyngeal incompetence [Recovering/Resolving]
  - Ankyloglossia congenital [Recovering/Resolving]
  - Congenital oral malformation [Recovering/Resolving]
  - Respiratory distress [Recovered/Resolved]
  - Attention deficit/hyperactivity disorder [Unknown]
  - Ear infection [Unknown]
  - Emotional disorder [Unknown]
  - Social avoidant behaviour [Unknown]
  - Cleft palate [Recovering/Resolving]
  - Hypertonia [Unknown]
